FAERS Safety Report 19795425 (Version 1)
Quarter: 2021Q3

REPORT INFORMATION
  Report Type: Spontaneous
  Country: US (occurrence: US)
  Receive Date: 20210906
  Receipt Date: 20210906
  Transmission Date: 20211014
  Serious: No
  Sender: FDA-Public Use
  Company Number: US-BEH-2021135566

PATIENT
  Sex: Female

DRUGS (2)
  1. HIZENTRA [Suspect]
     Active Substance: HUMAN IMMUNOGLOBULIN G
     Dosage: 1 GRAM, QD
     Route: 065
     Dates: start: 20210830
  2. HUMAN IMMUNOGLOBULIN (INN) [Suspect]
     Active Substance: HUMAN IMMUNOGLOBULIN G
     Route: 065

REACTIONS (5)
  - Infusion site pain [Unknown]
  - Infusion site warmth [Unknown]
  - Infusion site mass [Unknown]
  - Dyspnoea [Unknown]
  - Infusion site discolouration [Unknown]

NARRATIVE: CASE EVENT DATE: 2021
